FAERS Safety Report 7939873-4 (Version None)
Quarter: 2011Q4

REPORT INFORMATION
  Report Type: 
  Country: None (occurrence: None)
  Receive Date: 20111125
  Receipt Date: 20111118
  Transmission Date: 20120403
  Serious: Yes (Hospitalization)
  Sender: FDA-Public Use
  Company Number: FR-PFIZER INC-2011282512

PATIENT
  Age: 74 Year
  Sex: Male

DRUGS (2)
  1. RIFATER [Suspect]
     Indication: TUBERCULOSIS
     Dosage: 4 TABLETS ONCE DAILY
     Route: 048
     Dates: start: 20110626, end: 20110705
  2. VFEND [Suspect]
     Indication: ASPERGILLOSIS
     Dosage: 200 MG, 2X/DAY
     Route: 042
     Dates: start: 20110702

REACTIONS (2)
  - TRANSAMINASES INCREASED [None]
  - HYPERBILIRUBINAEMIA [None]
